FAERS Safety Report 9408096 (Version 1)
Quarter: 2013Q3

REPORT INFORMATION
  Report Type: Spontaneous
  Country: US (occurrence: US)
  Receive Date: 20130718
  Receipt Date: 20130718
  Transmission Date: 20140515
  Serious: No
  Sender: FDA-Public Use
  Company Number: US-TEVA-419828USA

PATIENT
  Age: 6 Decade
  Sex: Male

DRUGS (3)
  1. AZILECT [Suspect]
     Dosage: 1 MILLIGRAM DAILY;
  2. AZILECT [Suspect]
     Dosage: .5 MILLIGRAM DAILY;
  3. SYNTHROID [Concomitant]

REACTIONS (3)
  - Pyrexia [Recovered/Resolved]
  - Influenza like illness [Recovered/Resolved]
  - Headache [Recovered/Resolved]
